FAERS Safety Report 17031871 (Version 1)
Quarter: 2019Q4

REPORT INFORMATION
  Report Type: Spontaneous
  Country: US (occurrence: US)
  Receive Date: 20191114
  Receipt Date: 20191114
  Transmission Date: 20200122
  Serious: Yes (Other)
  Sender: FDA-Public Use
  Company Number: US-EPIC PHARMA LLC-2019EPC00307

PATIENT
  Age: 49 Year
  Sex: Female
  Weight: 40.82 kg

DRUGS (3)
  1. MEPERIDINE HYDROCHLORIDE. [Suspect]
     Active Substance: MEPERIDINE HYDROCHLORIDE
     Indication: SHORT-BOWEL SYNDROME
  2. BUPRENORPHINE. [Suspect]
     Active Substance: BUPRENORPHINE
  3. MEPERIDINE HYDROCHLORIDE. [Suspect]
     Active Substance: MEPERIDINE HYDROCHLORIDE
     Indication: AUTOIMMUNE DISORDER
     Dosage: 50-100 MG THREE TIMES DAILY AS NEEDED
     Route: 048
     Dates: end: 20191018

REACTIONS (9)
  - Device related sepsis [Unknown]
  - Venous stenosis [Unknown]
  - Vascular injury [Unknown]
  - Chest pain [Recovered/Resolved]
  - Device related thrombosis [Unknown]
  - Pain [Not Recovered/Not Resolved]
  - Drug hypersensitivity [Unknown]
  - Complication associated with device [Unknown]
  - Withdrawal syndrome [Recovered/Resolved]

NARRATIVE: CASE EVENT DATE: 20191018
